FAERS Safety Report 6528088-2 (Version None)
Quarter: 2010Q1

REPORT INFORMATION
  Report Type: 
  Country: None (occurrence: None)
  Receive Date: 20100106
  Receipt Date: 20091223
  Transmission Date: 20100710
  Serious: No
  Sender: FDA-Public Use
  Company Number: US-B.I. PHARMACEUTICALS,INC./RIDGEFIELD-2009-BP-14721BP

PATIENT
  Age: 49 Year
  Sex: Male

DRUGS (2)
  1. FLOMAX [Suspect]
     Indication: PROSTATOMEGALY
     Dosage: 0.4 MG
     Route: 048
     Dates: start: 20090101, end: 20090201
  2. VESICARE [Suspect]
     Indication: PROSTATOMEGALY
     Dates: start: 20090101, end: 20090201

REACTIONS (3)
  - ANGER [None]
  - MOOD SWINGS [None]
  - PALPITATIONS [None]
